FAERS Safety Report 7504200-3 (Version None)
Quarter: 2011Q2

REPORT INFORMATION
  Report Type: 
  Country: None (occurrence: None)
  Receive Date: 20110401
  Receipt Date: 20101221
  Transmission Date: 20111010
  Serious: No
  Sender: FDA-Public Use
  Company Number: US-004418

PATIENT
  Sex: Male
  Weight: 83.4619 kg

DRUGS (10)
  1. FIRMAGON [Suspect]
     Indication: PROSTATE CANCER
     Dosage: 240 MG 1X SUBCUTANEOUS, 80 MG 1X/MONTH SUBCUTANEOUS
     Route: 058
     Dates: start: 20100601, end: 20101221
  2. FIRMAGON [Suspect]
     Indication: PROSTATE CANCER
     Dosage: 240 MG 1X SUBCUTANEOUS, 80 MG 1X/MONTH SUBCUTANEOUS
     Route: 058
     Dates: start: 20100501, end: 20100501
  3. ALLOPURINOL [Concomitant]
  4. CHOLESTYRAMINE [Concomitant]
  5. NEXIUM [Concomitant]
  6. AVODART [Concomitant]
  7. GADOBUTROL [Concomitant]
  8. ZOMETA [Concomitant]
  9. CELEBREX [Concomitant]
  10. METFORMIN HCL [Concomitant]

REACTIONS (3)
  - INJECTION SITE ERYTHEMA [None]
  - INJECTION SITE NODULE [None]
  - INJECTION SITE WARMTH [None]
